FAERS Safety Report 15059167 (Version 2)
Quarter: 2018Q2

REPORT INFORMATION
  Report Type: Report from Study
  Country: IT (occurrence: IT)
  Receive Date: 20180625
  Receipt Date: 20180628
  Transmission Date: 20180711
  Serious: Yes (Other)
  Sender: FDA-Public Use
  Company Number: IT-PFIZER INC-2018255234

PATIENT

DRUGS (7)
  1. COLISTIN [Concomitant]
     Active Substance: COLISTIN
     Indication: INFECTION
  2. FOSFOMYCIN [Concomitant]
     Active Substance: FOSFOMYCIN
     Indication: KLEBSIELLA INFECTION
     Dosage: 4 G, 4X/DAY
     Route: 042
  3. ERTAPENEM. [Suspect]
     Active Substance: ERTAPENEM SODIUM
     Indication: INFECTION
  4. FOSFOMYCIN [Concomitant]
     Active Substance: FOSFOMYCIN
     Indication: INFECTION
  5. COLISTIN [Concomitant]
     Active Substance: COLISTIN
     Indication: KLEBSIELLA INFECTION
     Dosage: UNK (LOADING+MAINTENANCE DOSE ACCORDING TO RENAL FUNCTION)
  6. ERTAPENEM. [Suspect]
     Active Substance: ERTAPENEM SODIUM
     Indication: KLEBSIELLA INFECTION
     Dosage: 1 G, DAILY
  7. MEROPENEM. [Suspect]
     Active Substance: MEROPENEM
     Indication: KLEBSIELLA INFECTION
     Dosage: 2 G, 3X/DAY (DOUBLE CARBAPENEM)

REACTIONS (1)
  - Epilepsy [Unknown]
